FAERS Safety Report 10738805 (Version 2)
Quarter: 2015Q1

REPORT INFORMATION
  Report Type: Spontaneous
  Country: JP (occurrence: JP)
  Receive Date: 20150126
  Receipt Date: 20150331
  Transmission Date: 20150721
  Serious: Yes (Death, Hospitalization)
  Sender: FDA-Public Use
  Company Number: JP-MALLINCKRODT-T201500909

PATIENT
  Age: 40 Year
  Sex: Male
  Weight: 64 kg

DRUGS (12)
  1. FLIVAS [Concomitant]
     Active Substance: NAFTOPIDIL
     Dosage: 50 MG
     Route: 048
     Dates: end: 20141112
  2. MARCAIN [Concomitant]
     Active Substance: BUPIVACAINE HYDROCHLORIDE
     Dosage: 9.6 MG
     Route: 029
     Dates: start: 20141027, end: 20141027
  3. METHADONE [Suspect]
     Active Substance: METHADONE HYDROCHLORIDE
     Dosage: 15 MG (45 MG DAILY DOSE)
     Route: 048
     Dates: start: 20141029, end: 20141112
  4. UBRETID [Concomitant]
     Active Substance: DISTIGMINE BROMIDE
     Dosage: 5 MG
     Dates: end: 20141112
  5. MARCAIN [Concomitant]
     Active Substance: BUPIVACAINE HYDROCHLORIDE
     Dosage: 14.4 MG
     Route: 029
     Dates: start: 20141029, end: 20141102
  6. OXINORM [Concomitant]
     Active Substance: OXYCODONE HYDROCHLORIDE
     Dosage: 40 MG, PRN
     Route: 048
     Dates: start: 20141023
  7. PRAZAXA [Concomitant]
     Active Substance: DABIGATRAN ETEXILATE MESYLATE
     Dosage: 150 MG
     Route: 048
     Dates: end: 20141025
  8. REBAMIPIDE [Concomitant]
     Active Substance: REBAMIPIDE
     Dosage: 300 MG
     Route: 048
     Dates: end: 20141112
  9. METHADONE [Suspect]
     Active Substance: METHADONE HYDROCHLORIDE
     Indication: CANCER PAIN
     Dosage: 10 MG (30 MG DAILY DOSE)
     Route: 048
     Dates: start: 20141024, end: 20141028
  10. PARIET [Concomitant]
     Active Substance: RABEPRAZOLE SODIUM
     Dosage: 10 MG
     Route: 048
     Dates: end: 20141112
  11. MARCAIN [Concomitant]
     Active Substance: BUPIVACAINE HYDROCHLORIDE
     Dosage: 19.2 MG
     Route: 029
     Dates: start: 20141028, end: 20141028
  12. LOXOPROFEN [Concomitant]
     Active Substance: LOXOPROFEN
     Dosage: 180 MG
     Route: 048
     Dates: end: 20141112

REACTIONS (2)
  - Memory impairment [Recovering/Resolving]
  - Altered state of consciousness [Fatal]

NARRATIVE: CASE EVENT DATE: 20141103
